FAERS Safety Report 8265466-8 (Version None)
Quarter: 2012Q2

REPORT INFORMATION
  Report Type: 
  Country: None (occurrence: None)
  Receive Date: 20120403
  Receipt Date: 20120327
  Transmission Date: 20120825
  Serious: Yes (Other)
  Sender: FDA-Public Use
  Company Number: ADR-2012-00299

PATIENT
  Sex: Male
  Weight: 67 kg

DRUGS (1)
  1. BACLOFEN [Suspect]
     Dosage: 240 MCG/DAY

REACTIONS (5)
  - MUSCLE SPASTICITY [None]
  - IMPLANT SITE EFFUSION [None]
  - DEVICE CONNECTION ISSUE [None]
  - DEVICE BREAKAGE [None]
  - MEDICAL DEVICE COMPLICATION [None]
